FAERS Safety Report 9752035 (Version 1)
Quarter: 2013Q4

REPORT INFORMATION
  Report Type: Spontaneous
  Country: DE (occurrence: None)
  Receive Date: 20131211
  Receipt Date: 20131211
  Transmission Date: 20140711
  Serious: Yes (Hospitalization)
  Sender: FDA-Public Use
  Company Number: AUR-APL-2013-10321

PATIENT
  Age: 55 Year
  Sex: Female

DRUGS (9)
  1. RISPERIDONE (RISPERIDONE) [Suspect]
     Indication: PRODUCT USED FOR UNKNOWN INDICATION
  2. CLOZAPINE (CLOZAPINE) [Suspect]
     Indication: PRODUCT USED FOR UNKNOWN INDICATION
     Route: 048
     Dates: start: 20130118, end: 20130227
  3. HALOPERIDOL (HALOPERIDOL) (HALOPERIDOL) [Suspect]
     Indication: PRODUCT USED FOR UNKNOWN INDICATION
     Route: 048
     Dates: start: 20130409
  4. RANITIDINE (RANITIDINE) [Suspect]
     Indication: PRODUCT USED FOR UNKNOWN INDICATION
     Route: 048
     Dates: start: 2011, end: 20130227
  5. SEROQUEL (QUETIAPINE FUMARATE) [Suspect]
     Indication: PRODUCT USED FOR UNKNOWN INDICATION
  6. RAMIPRIL (RAMIPRIL) [Concomitant]
  7. FERRO SANOL (FERROUS GLUCONATE) [Concomitant]
  8. THIAMIN (THIAMINE HYDROCHLORIDE) [Concomitant]
  9. L-THYROXIN (LEVOTHYROXINE SODIUM) [Concomitant]

REACTIONS (2)
  - Hepatic cyst [None]
  - Drug interaction [None]
